FAERS Safety Report 12132771 (Version 1)
Quarter: 2016Q1

REPORT INFORMATION
  Report Type: Spontaneous
  Country: US (occurrence: US)
  Receive Date: 20160301
  Receipt Date: 20160301
  Transmission Date: 20160526
  Serious: No
  Sender: FDA-Public Use
  Company Number: US-ACTELION PHARMACEUTICALS US, INC.-A-NJ2016-131861

PATIENT
  Age: 78 Year
  Sex: Female

DRUGS (12)
  1. LIPITOR [Concomitant]
     Active Substance: ATORVASTATIN CALCIUM
  2. ZINC [Concomitant]
     Active Substance: ZINC\ZINC CHLORIDE
  3. FUROSEMIDE. [Concomitant]
     Active Substance: FUROSEMIDE
  4. CURCUMIN [Concomitant]
     Active Substance: CURCUMIN
  5. BYSTOLIC [Concomitant]
     Active Substance: NEBIVOLOL HYDROCHLORIDE
  6. COPPER [Concomitant]
     Active Substance: COPPER
  7. TAMOXIFEN [Concomitant]
     Active Substance: TAMOXIFEN
  8. L CARNITINE [Concomitant]
     Active Substance: LEVOCARNITINE
  9. VITAMIN D [Concomitant]
     Active Substance: CHOLECALCIFEROL
  10. OPSUMIT [Suspect]
     Active Substance: MACITENTAN
     Indication: PULMONARY ARTERIAL HYPERTENSION
     Dosage: 10 MG, QD
     Route: 048
  11. BETA CAROTENE [Concomitant]
  12. COQ10 [Concomitant]
     Active Substance: UBIDECARENONE

REACTIONS (2)
  - Peripheral swelling [Recovered/Resolved]
  - Unevaluable event [Recovered/Resolved]

NARRATIVE: CASE EVENT DATE: 20160201
